FAERS Safety Report 5612145-9 (Version None)
Quarter: 2008Q1

REPORT INFORMATION
  Report Type: 
  Country: None (occurrence: None)
  Receive Date: 20080128
  Receipt Date: 20080114
  Transmission Date: 20080703
  Serious: Yes (Life-Threatening)
  Sender: FDA-Public Use
  Company Number: SPV1-2008-00036

PATIENT
  Age: 56 Year
  Sex: Female
  Weight: 61 kg

DRUGS (4)
  1. MEZAVENT XL (MESALAZINE, MESALAZINE) TABLET [Suspect]
     Indication: COLITIS ULCERATIVE
     Dosage: 1G, ORAL
     Route: 048
     Dates: start: 20071130, end: 20080101
  2. ASACOL [Suspect]
     Indication: COLITIS ULCERATIVE
     Dosage: 800 MG, 3XDAY;TID, ORAL
     Route: 048
     Dates: start: 20071130, end: 20080101
  3. OMEPRAZOLE [Concomitant]
  4. PREDNISONE [Concomitant]

REACTIONS (1)
  - ASTHMA [None]
